FAERS Safety Report 17863773 (Version 1)
Quarter: 2020Q2

REPORT INFORMATION
  Report Type: Spontaneous
  Country: JP (occurrence: JP)
  Receive Date: 20200605
  Receipt Date: 20200605
  Transmission Date: 20200714
  Serious: Yes (Death, Hospitalization, Other)
  Sender: FDA-Public Use
  Company Number: JP-ROCHE-2613721

PATIENT
  Age: 61 Year
  Sex: Female
  Weight: 60 kg

DRUGS (10)
  1. ERIBULIN MESILATE [Concomitant]
     Active Substance: ERIBULIN
  2. DOXIFLURIDINE [Concomitant]
     Active Substance: DOXIFLURIDINE
  3. FASLODEX [Concomitant]
     Active Substance: FULVESTRANT
     Route: 042
  4. TAMOXIFEN CITRATE. [Concomitant]
     Active Substance: TAMOXIFEN CITRATE
  5. RITUXAN [Suspect]
     Active Substance: RITUXIMAB
     Indication: PRODUCT USED FOR UNKNOWN INDICATION
     Route: 041
  6. IBRANCE [Suspect]
     Active Substance: PALBOCICLIB
     Indication: BREAST CANCER
     Route: 048
     Dates: start: 20180302
  7. PALBOCICLIB [Concomitant]
     Active Substance: PALBOCICLIB
  8. CYCLOPHOSPHAMIDE MONOHYDRATE [Concomitant]
     Active Substance: CYCLOPHOSPHAMIDE
  9. PACLITAXEL. [Concomitant]
     Active Substance: PACLITAXEL
  10. FULVESTRANT. [Concomitant]
     Active Substance: FULVESTRANT

REACTIONS (3)
  - Myelodysplastic syndrome [Fatal]
  - Seizure [Unknown]
  - Bone marrow failure [Recovered/Resolved]

NARRATIVE: CASE EVENT DATE: 20190705
